FAERS Safety Report 6443040-3 (Version None)
Quarter: 2009Q4

REPORT INFORMATION
  Report Type: 
  Country: None (occurrence: None)
  Receive Date: 20091117
  Receipt Date: 20091105
  Transmission Date: 20100525
  Serious: Yes (Other)
  Sender: FDA-Public Use
  Company Number: FR-AMGEN-US366997

PATIENT
  Sex: Female

DRUGS (1)
  1. ENBREL [Suspect]
     Indication: ANKYLOSING SPONDYLITIS
     Route: 058
     Dates: start: 20090201

REACTIONS (5)
  - ACUTE SINUSITIS [None]
  - DEAFNESS UNILATERAL [None]
  - INFLUENZA [None]
  - SYNOVITIS [None]
  - TINNITUS [None]
